FAERS Safety Report 5743951-8 (Version None)
Quarter: 2008Q2

REPORT INFORMATION
  Report Type: 
  Country: None (occurrence: None)
  Receive Date: 20080516
  Receipt Date: 20080516
  Transmission Date: 20081010
  Serious: Yes (Hospitalization)
  Sender: FDA-Public Use
  Company Number: None

PATIENT
  Age: 53 Year
  Sex: Male
  Weight: 111.5849 kg

DRUGS (2)
  1. LISINOPRIL [Suspect]
     Indication: HYPERTENSION
     Dosage: 20MG DAILY PO
     Route: 048
     Dates: start: 20080427, end: 20080511
  2. LEXAPRO [Suspect]
     Indication: ANXIETY
     Dosage: 10MG DAILY PO
     Route: 048
     Dates: start: 20080506, end: 20080511

REACTIONS (4)
  - BLOOD PRESSURE INCREASED [None]
  - DRUG INEFFECTIVE [None]
  - DYSPNOEA [None]
  - FEELING ABNORMAL [None]
